FAERS Safety Report 18378430 (Version 1)
Quarter: 2020Q4

REPORT INFORMATION
  Report Type: Spontaneous
  Country: JP (occurrence: JP)
  Receive Date: 20201013
  Receipt Date: 20201013
  Transmission Date: 20210114
  Serious: Yes (Hospitalization, Other)
  Sender: FDA-Public Use
  Company Number: JP-ASTRAZENECA-2020SF31351

PATIENT
  Age: 69 Year
  Sex: Male
  Weight: 46 kg

DRUGS (13)
  1. NEXIUM [Suspect]
     Active Substance: ESOMEPRAZOLE MAGNESIUM
     Route: 048
     Dates: start: 20191214, end: 20200321
  2. BAKTAR [Suspect]
     Active Substance: SULFAMETHOXAZOLE\TRIMETHOPRIM
     Route: 048
     Dates: start: 20200114, end: 20200206
  3. FEXOFENADINE HYDROCHLORIDE. [Concomitant]
     Active Substance: FEXOFENADINE HYDROCHLORIDE
     Dosage: DOSE UNKNOWN
     Route: 065
     Dates: start: 20191214
  4. NAUZELIN [Concomitant]
     Active Substance: DOMPERIDONE
     Dosage: DOSE UNKNOWN
     Route: 065
     Dates: start: 20200114
  5. E KEPPRA [Concomitant]
     Active Substance: LEVETIRACETAM
     Dosage: DOSE UNKNOWN
     Route: 065
     Dates: start: 20191214
  6. FEBURIC [Suspect]
     Active Substance: FEBUXOSTAT
     Route: 048
     Dates: end: 20200321
  7. SENNOSIDE [Suspect]
     Active Substance: SENNOSIDES
     Dosage: 24.0MG AS REQUIRED
     Route: 048
     Dates: end: 20200321
  8. CALONAL [Suspect]
     Active Substance: ACETAMINOPHEN
     Dosage: 400.0MG AS REQUIRED
     Route: 048
  9. TEMOZOLOMIDE. [Concomitant]
     Active Substance: TEMOZOLOMIDE
     Dosage: DOSE UNKNOWN
     Route: 065
     Dates: start: 20200114
  10. LEUCON [Concomitant]
     Dosage: DOSE UNKNOWN
     Route: 065
     Dates: start: 20200114
  11. ULTIBRO [Concomitant]
     Active Substance: GLYCOPYRRONIUM\INDACATEROL
     Dosage: DOSE UNKNOWN
     Route: 055
     Dates: start: 20191214
  12. THEOPHYLLINE [Suspect]
     Active Substance: THEOPHYLLINE ANHYDROUS
     Route: 048
     Dates: end: 20200321
  13. CARBAMAZEPINE. [Suspect]
     Active Substance: CARBAMAZEPINE
     Indication: SEIZURE
     Dosage: 200 MG-300 MG
     Route: 048
     Dates: start: 20191227, end: 20200117

REACTIONS (5)
  - Cardiac failure congestive [Recovering/Resolving]
  - Drug eruption [Recovering/Resolving]
  - Pneumonia aspiration [Recovering/Resolving]
  - Pleurisy [Recovering/Resolving]
  - Dysphagia [Recovering/Resolving]

NARRATIVE: CASE EVENT DATE: 20200321
